FAERS Safety Report 5670746-6 (Version None)
Quarter: 2008Q1

REPORT INFORMATION
  Report Type: 
  Country: None (occurrence: None)
  Receive Date: 20080318
  Receipt Date: 20080310
  Transmission Date: 20080703
  Serious: No
  Sender: FDA-Public Use
  Company Number: PHEH2008US02408

PATIENT
  Age: 64 Year
  Sex: Female
  Weight: 73.015 kg

DRUGS (1)
  1. RECLAST [Suspect]
     Indication: OSTEOPOROSIS
     Dosage: ^15 MG^ IV YEARLY
     Dates: start: 20080213

REACTIONS (1)
  - HYPOTENSION [None]
